FAERS Safety Report 21122436 (Version 1)
Quarter: 2022Q3

REPORT INFORMATION
  Report Type: Spontaneous
  Country: VU (occurrence: US)
  Receive Date: 20220723
  Receipt Date: 20220723
  Transmission Date: 20221027
  Serious: Yes (Other)
  Sender: FDA-Public Use
  Company Number: 2022A257773

PATIENT
  Sex: Male

DRUGS (1)
  1. CRESTOR [Suspect]
     Active Substance: ROSUVASTATIN CALCIUM
     Indication: Blood cholesterol increased
     Dosage: UNKNOWN
     Route: 048

REACTIONS (4)
  - Cardiac failure congestive [Unknown]
  - Chronic kidney disease [Unknown]
  - Barrett^s oesophagus [Unknown]
  - Inability to afford medication [Unknown]
